FAERS Safety Report 14115916 (Version 3)
Quarter: 2018Q3

REPORT INFORMATION
  Report Type: Report from Study
  Country: GR (occurrence: GR)
  Receive Date: 20171023
  Receipt Date: 20180919
  Transmission Date: 20181010
  Serious: Yes (Hospitalization)
  Sender: FDA-Public Use
  Company Number: GR-JNJFOC-20171016935

PATIENT
  Age: 60 Year
  Sex: Female
  Weight: 120 kg

DRUGS (1)
  1. STELARA [Suspect]
     Active Substance: USTEKINUMAB
     Indication: PSORIASIS
     Dosage: MODERATE TO SEVERE PLAQUE PSO IN PATIENTS 12 YEARS + OLDER, ACTIVE PSORIATIC ARTHRITIS IN ADULTS
     Route: 058
     Dates: start: 20090622

REACTIONS (2)
  - Lower respiratory tract infection [Recovered/Resolved]
  - Asthmatic crisis [Recovered/Resolved]

NARRATIVE: CASE EVENT DATE: 20160213
